FAERS Safety Report 8694146 (Version 2)
Quarter: 2012Q4

REPORT INFORMATION
  Report Type: Report from Study
  Country: BE (occurrence: BE)
  Receive Date: 20120731
  Receipt Date: 20120920
  Transmission Date: 20130627
  Serious: Yes (Hospitalization)
  Sender: FDA-Public Use
  Company Number: BE-PFIZER INC-2012180127

PATIENT
  Sex: Male
  Weight: 58 kg

DRUGS (3)
  1. GENOTROPIN [Suspect]
     Dosage: 0.6 mg/day, 7 injections/week
     Route: 058
     Dates: start: 20020610
  2. ASPIRIN [Concomitant]
     Dosage: UNK
     Dates: start: 20000101
  3. WARFARIN [Concomitant]
     Indication: COAGULOPATHY
     Dosage: UNK
     Dates: start: 20000101

REACTIONS (1)
  - Inguinal hernia [Unknown]
